FAERS Safety Report 13828110 (Version 1)
Quarter: 2017Q3

REPORT INFORMATION
  Report Type: Spontaneous
  Country: CA (occurrence: US)
  Receive Date: 20170802
  Receipt Date: 20170802
  Transmission Date: 20171127
  Serious: Yes (Death, Hospitalization)
  Sender: FDA-Public Use
  Company Number: None

PATIENT
  Age: 71 Year
  Sex: Female
  Weight: 72.6 kg

DRUGS (1)
  1. MEMANTINE HYDROCHLORIDE. [Suspect]
     Active Substance: MEMANTINE HYDROCHLORIDE
     Dates: end: 20170606

REACTIONS (7)
  - Deep vein thrombosis [None]
  - Cerebral haemorrhage [None]
  - Pleural effusion [None]
  - Metastases to bone [None]
  - Pulmonary embolism [None]
  - Arthralgia [None]
  - Disease progression [None]

NARRATIVE: CASE EVENT DATE: 20170518
